FAERS Safety Report 8416519-2 (Version None)
Quarter: 2012Q2

REPORT INFORMATION
  Report Type: 
  Country: None (occurrence: None)
  Receive Date: 20120606
  Receipt Date: 20120323
  Transmission Date: 20120825
  Serious: Yes (Other)
  Sender: FDA-Public Use
  Company Number: CA-GLAXOSMITHKLINE-A0971069A

PATIENT
  Sex: Female

DRUGS (5)
  1. TYKERB [Suspect]
     Indication: BREAST CANCER METASTATIC
     Dosage: 1250MG PER DAY
     Route: 048
     Dates: start: 20120105, end: 20120531
  2. XELODA [Concomitant]
  3. MICARDIS [Concomitant]
  4. CLODRONATE DISODIUM [Concomitant]
  5. LABETALOL HCL [Concomitant]

REACTIONS (4)
  - DERMATITIS ACNEIFORM [None]
  - SKIN ULCER [None]
  - BREAST CANCER METASTATIC [None]
  - ERYTHEMA [None]
